FAERS Safety Report 6213724-0 (Version None)
Quarter: 2009Q2

REPORT INFORMATION
  Report Type: 
  Country: None (occurrence: None)
  Receive Date: 20090602
  Receipt Date: 20090522
  Transmission Date: 20091009
  Serious: Yes (Death, Hospitalization, Other)
  Sender: FDA-Public Use
  Company Number: WAES 0901USA00228

PATIENT
  Age: 53 Year
  Sex: Male
  Weight: 36.7414 kg

DRUGS (4)
  1. DECADRON (DEXAMETHASONE) UNK [Suspect]
     Dosage: 8 MG/QID/PO
     Route: 048
     Dates: start: 20080401, end: 20080523
  2. SUNITINIB MALEATE UNK [Suspect]
     Indication: NEOPLASM MALIGNANT
     Dosage: 37.5 MG/DAILY/PO
     Route: 048
     Dates: start: 20080428, end: 20080523
  3. DILAUDID [Concomitant]
  4. OXYCODONE [Concomitant]

REACTIONS (23)
  - ACIDOSIS [None]
  - ACUTE RESPIRATORY DISTRESS SYNDROME [None]
  - ALANINE AMINOTRANSFERASE INCREASED [None]
  - ASPARTATE AMINOTRANSFERASE INCREASED [None]
  - BONE EROSION [None]
  - CULTURE URINE POSITIVE [None]
  - DISEASE PROGRESSION [None]
  - HAEMOGLOBIN DECREASED [None]
  - HYPERGLYCAEMIA [None]
  - HYPERNATRAEMIA [None]
  - HYPOALBUMINAEMIA [None]
  - HYPOCALCAEMIA [None]
  - HYPOKALAEMIA [None]
  - MULTI-ORGAN FAILURE [None]
  - NECK PAIN [None]
  - NEUTROPENIA [None]
  - NO THERAPEUTIC RESPONSE [None]
  - PLATELET COUNT DECREASED [None]
  - PLEURAL EFFUSION [None]
  - PNEUMONIA [None]
  - PULMONARY OEDEMA [None]
  - STAPHYLOCOCCAL SEPSIS [None]
  - WHITE BLOOD CELL COUNT DECREASED [None]
